FAERS Safety Report 9602877 (Version 2)
Quarter: 2013Q4

REPORT INFORMATION
  Report Type: Spontaneous
  Country: US (occurrence: None)
  Receive Date: 20131003
  Receipt Date: 20131018
  Transmission Date: 20140711
  Serious: Yes (Hospitalization)
  Sender: FDA-Public Use
  Company Number: US-000792

PATIENT
  Sex: Female

DRUGS (2)
  1. GATTEX [Suspect]
     Indication: SHORT-BOWEL SYNDROME
     Dosage: STREN/VOLUM: 0.25 ML/FREQU: ONCE A DAY
     Route: 058
     Dates: start: 201308
  2. SOLUTIONS FOR PARENTERAL NUTRITION [Concomitant]

REACTIONS (5)
  - Nausea [None]
  - Tachycardia [None]
  - Treatment noncompliance [None]
  - Abdominal pain [None]
  - Drug dose omission [None]
